FAERS Safety Report 8044049-9 (Version None)
Quarter: 2012Q1

REPORT INFORMATION
  Report Type: 
  Country: None (occurrence: None)
  Receive Date: 20120113
  Receipt Date: 20120109
  Transmission Date: 20120608
  Serious: Yes (Hospitalization, Other)
  Sender: FDA-Public Use
  Company Number: US-JNJFOC-20091202389

PATIENT
  Sex: Female
  Weight: 68.04 kg

DRUGS (8)
  1. DURAGESIC-100 [Suspect]
     Route: 062
     Dates: start: 20040101
  2. DURAGESIC-100 [Suspect]
     Dosage: 100UG+100UG  NDC#: 50458-036-05
     Route: 062
     Dates: start: 20050101, end: 20091101
  3. AMBIEN CR [Concomitant]
     Indication: SLEEP DISORDER
     Dosage: AT BED TIME AS NECESSARY
     Route: 048
     Dates: start: 20050101
  4. DURAGESIC-100 [Suspect]
     Indication: MUSCULOSKELETAL PAIN
     Dosage: 200 UG/HR (100UG/HR/2 EVERY 72 HOURS)
     Route: 062
     Dates: start: 20010101
  5. CYMBALTA [Concomitant]
     Indication: DEPRESSION
     Route: 048
     Dates: start: 20010101
  6. DURAGESIC-100 [Suspect]
     Dosage: NDC#: 50458-094-05
     Route: 062
     Dates: start: 20091101
  7. BACLOFEN [Concomitant]
     Indication: MUSCLE SPASMS
     Dosage: 10 MG ONCE EVERY 8-12 HOURS
     Route: 048
     Dates: start: 20091101
  8. DURAGESIC-100 [Suspect]
     Dosage: 100 UG/HR/2 EVERY 72 HOURS, NDC: 50458-094-05
     Route: 062

REACTIONS (21)
  - COMA [None]
  - LOSS OF BLADDER SENSATION [None]
  - CLAVICLE FRACTURE [None]
  - SKULL FRACTURE [None]
  - COLITIS [None]
  - DRUG ADMINISTERED AT INAPPROPRIATE SITE [None]
  - HEAD INJURY [None]
  - UPPER LIMB FRACTURE [None]
  - SPLENIC RUPTURE [None]
  - SPINAL FRACTURE [None]
  - SPINAL CORD INJURY [None]
  - PATELLA FRACTURE [None]
  - URINARY TRACT INFECTION [None]
  - BLADDER PROLAPSE [None]
  - RIB FRACTURE [None]
  - ROAD TRAFFIC ACCIDENT [None]
  - NERVE INJURY [None]
  - BREAKTHROUGH PAIN [None]
  - PRODUCT ADHESION ISSUE [None]
  - PNEUMOTHORAX TRAUMATIC [None]
  - INTESTINAL PROLAPSE [None]
